FAERS Safety Report 11195131 (Version 1)
Quarter: 2015Q2

REPORT INFORMATION
  Report Type: Spontaneous
  Country: US (occurrence: None)
  Receive Date: 20150615
  Receipt Date: 20150615
  Transmission Date: 20150821
  Serious: Yes (Disabling)
  Sender: FDA-Public Use
  Company Number: None

PATIENT
  Age: 58 Year
  Sex: Female
  Weight: 65.77 kg

DRUGS (19)
  1. CGM MONITOR [Concomitant]
  2. MODAFINIL. [Concomitant]
     Active Substance: MODAFINIL
  3. TRAZODONE [Concomitant]
     Active Substance: TRAZODONE HYDROCHLORIDE
  4. SENOKOT-S [Concomitant]
     Active Substance: DOCUSATE SODIUM\SENNOSIDES
  5. INSULIN NOVOLOG [Concomitant]
  6. LANTUS [Concomitant]
     Active Substance: INSULIN GLARGINE
  7. TORSEMIDE. [Concomitant]
     Active Substance: TORSEMIDE
  8. PURIUM GREREN DRINK [Concomitant]
  9. VITAMIN D [Concomitant]
     Active Substance: CHOLECALCIFEROL
  10. EPLERENONE. [Concomitant]
     Active Substance: EPLERENONE
  11. PLAVIX [Concomitant]
     Active Substance: CLOPIDOGREL BISULFATE
  12. CALCIUM CHEWS [Concomitant]
  13. KRILL OIL [Concomitant]
     Active Substance: DIETARY SUPPLEMENT
  14. TRAMADOL [Concomitant]
     Active Substance: TRAMADOL
  15. LIDODERM [Concomitant]
     Active Substance: LIDOCAINE
  16. COQ10 [Concomitant]
     Active Substance: UBIDECARENONE
  17. PROLIA [Suspect]
     Active Substance: DENOSUMAB
     Indication: OSTEOPOROSIS
     Dosage: 1 INJECTION, ONCE A YEAR
     Route: 030
  18. VERAPAMIL [Concomitant]
     Active Substance: VERAPAMIL HYDROCHLORIDE
  19. GABAPENTIN. [Concomitant]
     Active Substance: GABAPENTIN

REACTIONS (18)
  - Decreased appetite [None]
  - Back pain [None]
  - Nausea [None]
  - Loss of consciousness [None]
  - Intermittent claudication [None]
  - Gait disturbance [None]
  - Depression [None]
  - Asthenia [None]
  - Blood pressure decreased [None]
  - Dizziness [None]
  - Blood phosphorus decreased [None]
  - Bone pain [None]
  - Arthralgia [None]
  - Neck pain [None]
  - Vomiting [None]
  - Pain in extremity [None]
  - Pruritus generalised [None]
  - Blood calcium decreased [None]

NARRATIVE: CASE EVENT DATE: 20150306
